FAERS Safety Report 14968280 (Version 1)
Quarter: 2018Q2

REPORT INFORMATION
  Report Type: Spontaneous
  Country: US (occurrence: US)
  Receive Date: 20180604
  Receipt Date: 20180604
  Transmission Date: 20180711
  Serious: No
  Sender: FDA-Public Use
  Company Number: US-GLAXOSMITHKLINE-US2018096082

PATIENT
  Sex: Female

DRUGS (2)
  1. LOW DOSE ASPIRIN [Concomitant]
     Active Substance: ASPIRIN
  2. SORIATANE [Suspect]
     Active Substance: ACITRETIN
     Indication: TRANSIENT ACANTHOLYTIC DERMATOSIS
     Dosage: 1 DF, QD
     Dates: start: 20180522

REACTIONS (2)
  - Product use in unapproved indication [Unknown]
  - Off label use [Unknown]
